FAERS Safety Report 24948180 (Version 1)
Quarter: 2025Q1

REPORT INFORMATION
  Report Type: Spontaneous
  Country: GB (occurrence: GB)
  Receive Date: 20250210
  Receipt Date: 20250210
  Transmission Date: 20250408
  Serious: Yes (Other)
  Sender: REGENERON
  Company Number: None

PATIENT
  Sex: Male

DRUGS (2)
  1. EYLEA [Suspect]
     Active Substance: AFLIBERCEPT
     Indication: Diabetic retinal oedema
     Dates: start: 20241123
  2. EYLEA [Suspect]
     Active Substance: AFLIBERCEPT
     Dates: start: 20241203, end: 20250116

REACTIONS (2)
  - Product administered at inappropriate site [Unknown]
  - Overdose [Recovered/Resolved]

NARRATIVE: CASE EVENT DATE: 20241203
